FAERS Safety Report 12405085 (Version 1)
Quarter: 2016Q2

REPORT INFORMATION
  Report Type: Spontaneous
  Country: US (occurrence: US)
  Receive Date: 20160525
  Receipt Date: 20160525
  Transmission Date: 20160815
  Serious: Yes (Hospitalization)
  Sender: FDA-Public Use
  Company Number: US-ASTRAZENECA-2016SE53778

PATIENT
  Age: 28539 Day
  Sex: Female

DRUGS (1)
  1. TAGRISSO [Suspect]
     Active Substance: OSIMERTINIB
     Indication: LUNG CANCER METASTATIC
     Route: 065
     Dates: start: 20160223, end: 20160507

REACTIONS (4)
  - Oxygen saturation decreased [Unknown]
  - Lung disorder [Unknown]
  - Cardiomyopathy [Unknown]
  - Dyspnoea at rest [Unknown]
